FAERS Safety Report 23709234 (Version 2)
Quarter: 2024Q3

REPORT INFORMATION
  Report Type: Spontaneous
  Country: GR (occurrence: GR)
  Receive Date: 20240404
  Receipt Date: 20240805
  Transmission Date: 20241016
  Serious: Yes (Disabling, Other)
  Sender: ELI LILLY AND CO
  Company Number: None

PATIENT
  Age: 35 Year
  Sex: Female

DRUGS (3)
  1. TRULICITY [Suspect]
     Active Substance: DULAGLUTIDE
     Indication: Product used for unknown indication
     Dosage: 0.75 MG, UNKNOWN
     Route: 065
     Dates: start: 202106, end: 202108
  2. TRULICITY [Suspect]
     Active Substance: DULAGLUTIDE
     Dosage: 1.5 MG, UNKNOWN
     Route: 065
     Dates: start: 202109, end: 202111
  3. LEVOTHYROXINE [Concomitant]
     Active Substance: LEVOTHYROXINE\LEVOTHYROXINE SODIUM
     Indication: Product used for unknown indication
     Dosage: 100 UG
     Dates: start: 2004

REACTIONS (3)
  - Blood follicle stimulating hormone increased [Not Recovered/Not Resolved]
  - Anti-Muellerian hormone level decreased [Not Recovered/Not Resolved]
  - Ovarian failure [Not Recovered/Not Resolved]

NARRATIVE: CASE EVENT DATE: 20220101
